FAERS Safety Report 8504868-9 (Version None)
Quarter: 2012Q3

REPORT INFORMATION
  Report Type: 
  Country: None (occurrence: None)
  Receive Date: 20120712
  Receipt Date: 20120703
  Transmission Date: 20120928
  Serious: Yes (Other)
  Sender: FDA-Public Use
  Company Number: JP-009507513-1207JPN000119

PATIENT

DRUGS (3)
  1. LENDORMIN [Concomitant]
     Indication: INSOMNIA
     Dosage: THE DIVIDED DOSE FREQUENCY IS UNCERTAIN.
     Route: 048
  2. REBETOL [Suspect]
     Indication: HEPATITIS C
     Dosage: 200MG400MG IN EVENING IN MORNING
     Route: 048
     Dates: start: 20100713, end: 20100722
  3. INTERFERON BETA NOS [Suspect]
     Indication: HEPATITIS C
     Route: 042
     Dates: start: 20100713, end: 20100722

REACTIONS (3)
  - PROTEINURIA [None]
  - NEPHROTIC SYNDROME [None]
  - PYREXIA [None]
